FAERS Safety Report 7732435-3 (Version None)
Quarter: 2011Q3

REPORT INFORMATION
  Report Type: 
  Country: None (occurrence: None)
  Receive Date: 20110906
  Receipt Date: 20110826
  Transmission Date: 20111222
  Serious: Yes (Hospitalization)
  Sender: FDA-Public Use
  Company Number: CA-US-EMD SERONO, INC.-7003543

PATIENT
  Sex: Female

DRUGS (10)
  1. BACLOFEN [Concomitant]
  2. ELAVIL [Concomitant]
  3. VITAMIN D + CALCIUM [Concomitant]
  4. DOCUSATE SODIUM [Concomitant]
  5. WELLBUTRIN [Concomitant]
  6. METRONIDAZOLE [Concomitant]
  7. TOPAMAX [Concomitant]
  8. REBIF [Suspect]
     Indication: RELAPSING-REMITTING MULTIPLE SCLEROSIS
     Route: 058
     Dates: start: 20090820
  9. LECTOPAM TAB [Concomitant]
  10. GABAPENTIN [Concomitant]

REACTIONS (7)
  - PNEUMONIA [None]
  - INJECTION SITE PAIN [None]
  - RENAL DISORDER [None]
  - MUSCULAR WEAKNESS [None]
  - MULTIPLE SCLEROSIS RELAPSE [None]
  - INJECTION SITE HAEMATOMA [None]
  - MOTOR DYSFUNCTION [None]
